FAERS Safety Report 18679150 (Version 1)
Quarter: 2020Q4

REPORT INFORMATION
  Report Type: Spontaneous
  Country: CA (occurrence: CA)
  Receive Date: 20201229
  Receipt Date: 20201229
  Transmission Date: 20210114
  Serious: Yes (Other)
  Sender: FDA-Public Use
  Company Number: CA-PFIZER INC-2018293477

PATIENT
  Age: 51 Year
  Sex: Female

DRUGS (5)
  1. CANNABIDIOL [Concomitant]
     Active Substance: CANNABIDIOL
     Dosage: UNK
     Route: 065
  2. TRAMACET [Concomitant]
     Active Substance: ACETAMINOPHEN\TRAMADOL
     Dosage: UNK
     Route: 065
  3. XELJANZ [Suspect]
     Active Substance: TOFACITINIB CITRATE
     Dosage: 5 MG, 2X/DAY
     Route: 048
     Dates: start: 2018
  4. XELJANZ [Suspect]
     Active Substance: TOFACITINIB CITRATE
     Dosage: 5 MG, 2X/DAY
     Route: 048
     Dates: start: 2018, end: 2018
  5. XELJANZ [Suspect]
     Active Substance: TOFACITINIB CITRATE
     Indication: RHEUMATOID ARTHRITIS
     Dosage: 5 MG, 1X/DAY
     Route: 048
     Dates: start: 20180513, end: 2018

REACTIONS (12)
  - Therapeutic product effect incomplete [Recovering/Resolving]
  - Diarrhoea [Recovered/Resolved]
  - Nasal congestion [Unknown]
  - Haemorrhoids [Unknown]
  - Gastrointestinal disorder [Recovered/Resolved]
  - Tooth infection [Unknown]
  - Pain [Unknown]
  - Pyrexia [Unknown]
  - Condition aggravated [Unknown]
  - Diverticulitis [Unknown]
  - Malaise [Recovered/Resolved]
  - Headache [Unknown]

NARRATIVE: CASE EVENT DATE: 20201223
